FAERS Safety Report 7478140-2 (Version None)
Quarter: 2011Q2

REPORT INFORMATION
  Report Type: 
  Country: None (occurrence: None)
  Receive Date: 20110513
  Receipt Date: 20110429
  Transmission Date: 20111010
  Serious: Yes (Other)
  Sender: FDA-Public Use
  Company Number: DK-JNJFOC-20110307689

PATIENT
  Sex: Female

DRUGS (5)
  1. REMICADE [Suspect]
     Route: 042
  2. REMICADE [Suspect]
     Indication: RHEUMATOID ARTHRITIS
     Route: 042
  3. AZATHIOPRINE [Concomitant]
  4. REMICADE [Suspect]
     Route: 042
  5. REMICADE [Suspect]
     Route: 042

REACTIONS (6)
  - OROPHARYNGEAL PAIN [None]
  - INFUSION RELATED REACTION [None]
  - PARAESTHESIA [None]
  - ERYTHEMA [None]
  - DYSPNOEA [None]
  - PHARYNGEAL OEDEMA [None]
